FAERS Safety Report 6834836-4 (Version None)
Quarter: 2010Q3

REPORT INFORMATION
  Report Type: 
  Country: None (occurrence: None)
  Receive Date: 20100712
  Receipt Date: 20070419
  Transmission Date: 20110219
  Serious: No
  Sender: FDA-Public Use
  Company Number: US-PFIZER INC-2007033181

PATIENT
  Sex: Female
  Weight: 70.31 kg

DRUGS (6)
  1. CHANTIX [Suspect]
     Indication: SMOKING CESSATION THERAPY
     Dates: start: 20070412
  2. TOPROL-XL [Concomitant]
  3. PLAVIX [Concomitant]
  4. ALTACE [Concomitant]
  5. CRESTOR [Concomitant]
  6. ACETYLSALICYLIC ACID [Concomitant]

REACTIONS (4)
  - ABDOMINAL DISCOMFORT [None]
  - DECREASED APPETITE [None]
  - NAUSEA [None]
  - VOMITING [None]
